FAERS Safety Report 10344327 (Version 2)
Quarter: 2014Q3

REPORT INFORMATION
  Report Type: Report from Study
  Country: US (occurrence: US)
  Receive Date: 20140728
  Receipt Date: 20140825
  Transmission Date: 20150326
  Serious: Yes (Hospitalization)
  Sender: FDA-Public Use
  Company Number: US-BIOGENIDEC-2014BI073151

PATIENT
  Age: 56 Year
  Sex: Female

DRUGS (1)
  1. TYSABRI [Suspect]
     Active Substance: NATALIZUMAB
     Indication: MULTIPLE SCLEROSIS
     Route: 042
     Dates: start: 20070607

REACTIONS (5)
  - Vomiting [Unknown]
  - Pneumonia [Unknown]
  - Thrombosis [Not Recovered/Not Resolved]
  - Stent placement [Unknown]
  - Aphagia [Unknown]

NARRATIVE: CASE EVENT DATE: 201406
